FAERS Safety Report 21768669 (Version 5)
Quarter: 2024Q2

REPORT INFORMATION
  Report Type: Report from Study
  Country: NL (occurrence: NL)
  Receive Date: 20221222
  Receipt Date: 20240430
  Transmission Date: 20240716
  Serious: Yes (Death, Hospitalization, Other)
  Sender: FDA-Public Use
  Company Number: NL-VER-202200148

PATIENT
  Age: 59 Year
  Sex: Male

DRUGS (4)
  1. TRIPTORELIN PAMOATE [Suspect]
     Active Substance: TRIPTORELIN PAMOATE
     Indication: Prostate cancer
     Dosage: 0.125 MILLIGRAM(S),11.25 MILLIGRAM(S), 1 IN 3 MONTH
     Route: 030
     Dates: start: 20231123, end: 20231123
  2. TRIPTORELIN PAMOATE [Suspect]
     Active Substance: TRIPTORELIN PAMOATE
     Indication: Prostate cancer
     Dosage: 0.125 MILLIGRAM(S),11.25 MILLIGRAM(S), 1 IN 3 MONTH
     Route: 030
     Dates: start: 20240215, end: 20240215
  3. TRIPTORELIN PAMOATE [Suspect]
     Active Substance: TRIPTORELIN PAMOATE
     Indication: Prostate cancer
     Dosage: 20-FEB-2023.
     Route: 030
     Dates: start: 20230220, end: 20230220
  4. TRIPTORELIN PAMOATE [Suspect]
     Active Substance: TRIPTORELIN PAMOATE
     Indication: Prostate cancer
     Dosage: SOLV 2ML; BATCH W06919 WITH EXPIRATION DATE OF ?JAN-2024.
     Route: 030
     Dates: start: 20210715, end: 20210715

REACTIONS (3)
  - Death [Fatal]
  - Pain [Unknown]
  - Metastases to spine [Recovering/Resolving]

NARRATIVE: CASE EVENT DATE: 20221118
